FAERS Safety Report 16347401 (Version 5)
Quarter: 2020Q3

REPORT INFORMATION
  Report Type: Report from Study
  Country: CO (occurrence: CO)
  Receive Date: 20190523
  Receipt Date: 20200804
  Transmission Date: 20201102
  Serious: Yes (Hospitalization, Disabling, Other)
  Sender: FDA-Public Use
  Company Number: CO-SA-2019SA111682

PATIENT

DRUGS (4)
  1. BECLOMETHASONE [BECLOMETASONE] [Concomitant]
     Active Substance: BECLOMETHASONE
     Route: 065
  2. ALEMTUZUMAB [Suspect]
     Active Substance: ALEMTUZUMAB
     Indication: MULTIPLE SCLEROSIS
     Dosage: 12 MG/1.2 ML, QD
     Route: 041
     Dates: start: 20190417, end: 20190419
  3. ALEMTUZUMAB [Suspect]
     Active Substance: ALEMTUZUMAB
     Dosage: UNK
     Route: 065
     Dates: start: 20180421
  4. SALBUTAMOL [Concomitant]
     Active Substance: ALBUTEROL
     Route: 055

REACTIONS (21)
  - Pyrexia [Recovering/Resolving]
  - Urobilinogen urine increased [Recovered/Resolved]
  - Blood potassium decreased [Not Recovered/Not Resolved]
  - Blood calcium decreased [Not Recovered/Not Resolved]
  - Proteinuria [Recovered/Resolved]
  - Lymphocyte count decreased [Not Recovered/Not Resolved]
  - Herpes zoster [Recovering/Resolving]
  - Leukocyturia [Recovered/Resolved]
  - Bacteriuria [Recovered/Resolved]
  - Erysipelas [Recovering/Resolving]
  - Speech disorder [Not Recovered/Not Resolved]
  - Red blood cell sedimentation rate increased [Recovered/Resolved]
  - Pain in extremity [Unknown]
  - Red blood cell count decreased [Recovered/Resolved]
  - Haematuria [Recovered/Resolved]
  - Asthenia [Unknown]
  - Gait inability [Not Recovered/Not Resolved]
  - Haematocrit decreased [Recovered/Resolved]
  - Haemoglobin decreased [Recovered/Resolved]
  - Crystal urine present [Recovered/Resolved]
  - Nitrite urine present [Recovered/Resolved]

NARRATIVE: CASE EVENT DATE: 20190421
